FAERS Safety Report 5255217-3 (Version None)
Quarter: 2007Q1

REPORT INFORMATION
  Report Type: 
  Country: None (occurrence: None)
  Receive Date: 20070305
  Receipt Date: 20070222
  Transmission Date: 20070707
  Serious: Yes (Disabling)
  Sender: FDA-Public Use
  Company Number: GB-AMGEN-UK212395

PATIENT
  Age: 52 Year
  Sex: Female
  Weight: 119 kg

DRUGS (25)
  1. CINACALCET [Suspect]
     Indication: PRE-EXISTING DISEASE
     Route: 048
     Dates: start: 20061212, end: 20070206
  2. ALLOPURINOL [Concomitant]
     Dates: start: 19950912
  3. ATORVASTATIN [Concomitant]
     Dates: start: 20041214
  4. AUGMENTIN [Concomitant]
     Dates: start: 20070206
  5. BECLOMETHASONE DIPROPIONATE [Concomitant]
     Route: 055
     Dates: start: 19970314
  6. CHLORPHENIRAMINE MALEATE [Concomitant]
     Dates: start: 20050909
  7. DOXYCYCLINE [Concomitant]
     Dates: start: 20051129
  8. EZETIMIBE [Concomitant]
     Dates: start: 20000816
  9. FLUOXETINE [Concomitant]
  10. FUROSEMIDE [Concomitant]
     Dates: start: 20050816
  11. HYDROCORTISONE [Concomitant]
     Dates: start: 20051025
  12. KAPAKE [Concomitant]
     Dates: start: 20060407
  13. LACTULOSE [Concomitant]
     Dates: start: 20060407
  14. LANSOPRAZOLE [Concomitant]
     Dates: start: 20051004
  15. LANTUS [Concomitant]
     Dates: start: 20050209
  16. LISINOPRIL [Concomitant]
     Dates: start: 20070123
  17. NEFOPAM HYDROCHLORIDE [Concomitant]
     Dates: start: 20060328
  18. NEORECORMON [Concomitant]
     Dates: start: 20070103
  19. NOVORAPID [Concomitant]
     Dates: start: 20050209
  20. ORLISTAT [Concomitant]
     Dates: start: 20050614
  21. PIRITON [Concomitant]
     Dates: start: 20061017
  22. QUININE BISULFATE [Concomitant]
     Dates: start: 19970513
  23. SIROLIMUS [Concomitant]
     Dates: start: 20070115
  24. SPIRONOLACTONE [Concomitant]
     Dates: start: 20051025
  25. VENTOLIN [Concomitant]
     Route: 055

REACTIONS (2)
  - NEPHROTIC SYNDROME [None]
  - PROTEINURIA [None]
